FAERS Safety Report 9140849 (Version 1)
Quarter: 2013Q1

REPORT INFORMATION
  Report Type: Spontaneous
  Country: US (occurrence: US)
  Receive Date: 20130305
  Receipt Date: 20130305
  Transmission Date: 20140127
  Serious: No
  Sender: FDA-Public Use
  Company Number: US-PFIZER INC-2013077357

PATIENT
  Sex: Female

DRUGS (2)
  1. LYRICA [Suspect]
     Indication: POST HERPETIC NEURALGIA
     Dosage: 50 MG, UNK
     Dates: start: 201302, end: 20130304
  2. LYRICA [Suspect]
     Dosage: 100 MG, UNK
     Dates: start: 20130304

REACTIONS (1)
  - Drug ineffective [Unknown]
